FAERS Safety Report 25682051 (Version 1)
Quarter: 2025Q3

REPORT INFORMATION
  Report Type: Spontaneous
  Country: EU (occurrence: EU)
  Receive Date: 20250814
  Receipt Date: 20250814
  Transmission Date: 20251021
  Serious: Yes (Other)
  Sender: CHEPLAPHARM
  Company Number: None

PATIENT

DRUGS (7)
  1. OLANZAPINE [Suspect]
     Active Substance: OLANZAPINE
     Dosage: 1 TABLET/DAY?DAILY DOSE: 7.5 MILLIGRAM
     Route: 064
     Dates: start: 20241201
  2. QUETIAPINE [Suspect]
     Active Substance: QUETIAPINE
     Route: 064
     Dates: start: 20241201
  3. BACLOFEN [Suspect]
     Active Substance: BACLOFEN
     Route: 064
     Dates: start: 20241201
  4. OXAZEPAM [Suspect]
     Active Substance: OXAZEPAM
     Dosage: 50 MG; 0.5 TABLETS/DAY?DAILY DOSE: 0.5 DOSAGE FORM
     Route: 064
  5. OXAZEPAM [Suspect]
     Active Substance: OXAZEPAM
     Route: 064
  6. MIRTAZAPINE [Suspect]
     Active Substance: MIRTAZAPINE
     Dosage: DAILY DOSE: 0.5 DOSAGE FORM
     Route: 064
  7. ZOPICLONE [Suspect]
     Active Substance: ZOPICLONE
     Dosage: 1 TABLET/DAY?DAILY DOSE: 1 DOSAGE FORM
     Route: 064

REACTIONS (2)
  - Foetal growth restriction [Not Recovered/Not Resolved]
  - Foetal exposure during pregnancy [Not Recovered/Not Resolved]

NARRATIVE: CASE EVENT DATE: 20241201
